FAERS Safety Report 18134975 (Version 1)
Quarter: 2020Q3

REPORT INFORMATION
  Report Type: Spontaneous
  Country: US (occurrence: US)
  Receive Date: 20200810
  Receipt Date: 20200810
  Transmission Date: 20201103
  Serious: Yes (Hospitalization)
  Sender: FDA-Public Use
  Company Number: None

PATIENT
  Age: 66 Year
  Sex: Male

DRUGS (1)
  1. YERVOY [Suspect]
     Active Substance: IPILIMUMAB
     Route: 042
     Dates: start: 20200528

REACTIONS (6)
  - Blister [None]
  - Pain [None]
  - Pustule [None]
  - Haemorrhage [None]
  - Pruritus [None]
  - Sepsis [None]

NARRATIVE: CASE EVENT DATE: 20200731
